FAERS Safety Report 6839643-4 (Version None)
Quarter: 2010Q3

REPORT INFORMATION
  Report Type: 
  Country: None (occurrence: None)
  Receive Date: 20100714
  Receipt Date: 20100708
  Transmission Date: 20110219
  Serious: Yes (Other)
  Sender: FDA-Public Use
  Company Number: CA-ROXANE LABORATORIES, INC.-2010-RO-00812RO

PATIENT
  Age: 6 Month
  Sex: Female

DRUGS (8)
  1. FLUTICASONE PROPIONATE [Suspect]
     Indication: ASTHMA
     Dosage: 300 MCG
     Route: 055
     Dates: start: 20040101, end: 20060101
  2. FLUTICASONE PROPIONATE [Suspect]
     Dosage: 500 MCG
     Route: 055
     Dates: start: 20060101, end: 20060101
  3. DEXAMETHASONE ACETATE [Suspect]
     Indication: ASTHMA
  4. PREDNISOLONE [Suspect]
     Indication: ASTHMA
  5. MOMETASONE FUROATE [Suspect]
     Indication: ASTHMA
     Route: 045
     Dates: start: 20060101
  6. FLUTICASONE PROPIONATE/SALMETEROL [Suspect]
     Indication: ASTHMA
     Dosage: 500 MCG
     Route: 055
     Dates: start: 20060101
  7. HYDROCORTISONE [Suspect]
     Indication: ASTHMA
     Dosage: 7.5 MG
  8. MONTELUKAST [Suspect]
     Indication: ASTHMA

REACTIONS (4)
  - ADRENAL SUPPRESSION [None]
  - ASTHMA [None]
  - DRUG INEFFECTIVE [None]
  - UPPER RESPIRATORY TRACT INFECTION [None]
